FAERS Safety Report 4969884-2 (Version None)
Quarter: 2006Q1

REPORT INFORMATION
  Report Type: 
  Country: None (occurrence: None)
  Receive Date: 20060202
  Receipt Date: 20050802
  Transmission Date: 20060701
  Serious: Yes (Other)
  Sender: FDA-Public Use
  Company Number: US-2005-013000

PATIENT
  Age: 21 Year
  Sex: Female
  Weight: 104.3 kg

DRUGS (1)
  1. MIRENA [Suspect]
     Indication: CONTRACEPTION
     Dosage: 20 UG/DAY, CONT, INTRA-UTERINE
     Route: 015
     Dates: start: 20030301, end: 20050601

REACTIONS (6)
  - COMPLICATION OF DEVICE REMOVAL [None]
  - DRUG INEFFECTIVE [None]
  - NORMAL NEWBORN [None]
  - POSTPARTUM DEPRESSION [None]
  - PREGNANCY WITH CONTRACEPTIVE DEVICE [None]
  - UTERINE PERFORATION [None]
